FAERS Safety Report 5839923-5 (Version None)
Quarter: 2008Q3

REPORT INFORMATION
  Report Type: 
  Country: None (occurrence: None)
  Receive Date: 20080811
  Receipt Date: 20080730
  Transmission Date: 20090109
  Serious: Yes (Hospitalization)
  Sender: FDA-Public Use
  Company Number: US-BAYER-200829653NA

PATIENT
  Age: 46 Year
  Sex: Female

DRUGS (3)
  1. AVELOX [Suspect]
     Indication: SINUS OPERATION
     Route: 048
     Dates: start: 20080724, end: 20080727
  2. AUGMENTIN '125' [Concomitant]
     Dates: start: 20080710
  3. BIRTH CONTROL [Concomitant]

REACTIONS (6)
  - DIARRHOEA [None]
  - DIZZINESS [None]
  - DYSPNOEA [None]
  - FATIGUE [None]
  - HYPOAESTHESIA [None]
  - PULMONARY EMBOLISM [None]
